FAERS Safety Report 9940531 (Version 1)
Quarter: 2014Q1

REPORT INFORMATION
  Report Type: Spontaneous
  Country: BR (occurrence: BR)
  Receive Date: 20140303
  Receipt Date: 20140303
  Transmission Date: 20141002
  Serious: Yes (Other)
  Sender: FDA-Public Use
  Company Number: BR-PFIZER INC-2014055264

PATIENT
  Age: 61 Year
  Sex: Female

DRUGS (2)
  1. XALATAN [Suspect]
     Indication: GLAUCOMA
     Dosage: 1 DROP IN EACH EYE (3 UG), 1X/DAY
     Route: 047
     Dates: start: 20100324, end: 20131225
  2. ZOLOFT [Concomitant]
     Dosage: 1 TABLET, 1X/DAY
     Dates: start: 20130809

REACTIONS (1)
  - Cataract [Unknown]
